FAERS Safety Report 8477699-6 (Version None)
Quarter: 2012Q2

REPORT INFORMATION
  Report Type: 
  Country: None (occurrence: None)
  Receive Date: 20120629
  Receipt Date: 20120618
  Transmission Date: 20120825
  Serious: No
  Sender: FDA-Public Use
  Company Number: JP-JNJFOC-20120611852

PATIENT
  Sex: Female

DRUGS (10)
  1. YOKUKAN-SAN [Concomitant]
     Route: 048
     Dates: start: 20120127, end: 20120511
  2. LYRICA [Concomitant]
     Indication: PAIN
     Route: 048
     Dates: start: 20110714, end: 20110721
  3. IMIPRAMINE HCL [Concomitant]
     Indication: PAIN
     Route: 048
     Dates: start: 20110715
  4. MAGNESIUM OXIDE [Concomitant]
     Indication: PROPHYLAXIS
     Route: 048
     Dates: start: 20110812
  5. FENTANYL-100 [Suspect]
     Indication: PAIN
     Route: 062
     Dates: start: 20111118
  6. LYRICA [Concomitant]
     Route: 048
     Dates: start: 20110721, end: 20111118
  7. LYRICA [Concomitant]
     Route: 048
     Dates: start: 20110718, end: 20120217
  8. PROCHLORPERAZINE [Concomitant]
     Indication: PROPHYLAXIS
     Route: 048
     Dates: start: 20110812
  9. LAXOBERON [Concomitant]
     Indication: PROPHYLAXIS
     Route: 048
     Dates: start: 20111209
  10. MEXITIL [Concomitant]
     Indication: PAIN
     Route: 048
     Dates: start: 20120106, end: 20120203

REACTIONS (2)
  - CONSTIPATION [None]
  - NAUSEA [None]
